FAERS Safety Report 5855189-4 (Version None)
Quarter: 2008Q3

REPORT INFORMATION
  Report Type: 
  Country: None (occurrence: None)
  Receive Date: 20080821
  Receipt Date: 20080811
  Transmission Date: 20090109
  Serious: Yes (Other)
  Sender: FDA-Public Use
  Company Number: 2008-181990-NL

PATIENT
  Age: 49 Year
  Sex: Female
  Weight: 62.6 kg

DRUGS (1)
  1. IMPLANON [Suspect]
     Indication: CONTRACEPTION
     Dosage: SUBDERMAL
     Route: 059
     Dates: start: 20080129, end: 20080807

REACTIONS (3)
  - BREAST CANCER FEMALE [None]
  - OESTROGEN RECEPTOR ASSAY NEGATIVE [None]
  - PROGESTERONE RECEPTOR ASSAY NEGATIVE [None]
